FAERS Safety Report 7417427-6 (Version None)
Quarter: 2011Q2

REPORT INFORMATION
  Report Type: 
  Country: None (occurrence: None)
  Receive Date: 20110412
  Receipt Date: 20110412
  Transmission Date: 20111010
  Serious: No
  Sender: FDA-Public Use
  Company Number: None

PATIENT
  Sex: Female
  Weight: 72.5755 kg

DRUGS (1)
  1. FEXOFENADINE [Suspect]
     Indication: MULTIPLE ALLERGIES
     Dosage: 60MG 2 X PER DAY
     Dates: start: 20110321

REACTIONS (1)
  - HEADACHE [None]
